FAERS Safety Report 4338398-5 (Version None)
Quarter: 2004Q2

REPORT INFORMATION
  Report Type: 
  Country: None (occurrence: None)
  Receive Date: 20040407
  Receipt Date: 20040329
  Transmission Date: 20050107
  Serious: Yes (Other)
  Sender: FDA-Public Use
  Company Number: 2002103194DE

PATIENT
  Age: 39 Year
  Sex: Female

DRUGS (10)
  1. VANTIN [Suspect]
     Indication: BACTERIAL INFECTION
     Dosage: 200 MG, QD, ORAL
     Route: 048
     Dates: start: 20010711, end: 20010720
  2. FOLIC ACID [Concomitant]
  3. TROMCARDIN (MAGNESIUM ASPARTATE, ASPARTATE MAGNESIUM) [Concomitant]
  4. MAGNETRANS FORTE [Concomitant]
  5. VERTIGOHEEL (HOMEOPATICS NOS) [Concomitant]
  6. CLOTRIMAZOLE [Concomitant]
  7. MULTIBIONTA FORTE (BIOTIN, RETINOL, CALCIUM PANTOTHENATE) [Concomitant]
  8. METHYLDOPA [Concomitant]
  9. PARTUSISTEN (FENOTEROL HYDROBROMIDE) [Concomitant]
  10. POTASSIUM [Concomitant]

REACTIONS (5)
  - CAESAREAN SECTION [None]
  - COMPLICATIONS OF MATERNAL EXPOSURE TO THERAPEUTIC DRUGS [None]
  - PLACENTAL INSUFFICIENCY [None]
  - PRE-ECLAMPSIA [None]
  - UMBILICAL CORD AROUND NECK [None]
